FAERS Safety Report 5925787-8 (Version None)
Quarter: 2008Q4

REPORT INFORMATION
  Report Type: 
  Country: None (occurrence: None)
  Receive Date: 20081021
  Receipt Date: 20081009
  Transmission Date: 20090506
  Serious: Yes (Hospitalization)
  Sender: FDA-Public Use
  Company Number: ES-ELI_LILLY_AND_COMPANY-ES200810004405

PATIENT
  Age: 88 Year
  Sex: Female

DRUGS (5)
  1. FORTEO [Suspect]
     Indication: OSTEOPOROSIS
     Dosage: 20 UG, UNKNOWN
     Route: 058
     Dates: start: 20071101
  2. REQUIP [Concomitant]
     Indication: PARKINSON'S DISEASE
  3. DIEMIL [Concomitant]
     Indication: VERTIGO
     Dosage: UNK, UNKNOWN
     Route: 065
  4. SERETIDE [Concomitant]
     Indication: BRONCHIOLITIS
     Dosage: UNK, UNKNOWN
     Route: 055
  5. DAFLON [Concomitant]
     Indication: CARDIOVASCULAR INSUFFICIENCY
     Dosage: UNK, UNKNOWN
     Route: 065

REACTIONS (2)
  - FALL [None]
  - TIBIA FRACTURE [None]
